FAERS Safety Report 4942383-X (Version None)
Quarter: 2006Q1

REPORT INFORMATION
  Report Type: 
  Country: None (occurrence: None)
  Receive Date: 20060313
  Receipt Date: 20050119
  Transmission Date: 20060701
  Serious: No
  Sender: FDA-Public Use
  Company Number: US-GLAXOSMITHKLINE-A0541270A

PATIENT
  Age: 59 Year
  Sex: Female

DRUGS (1)
  1. NICORETTE [Suspect]

REACTIONS (5)
  - DRUG ABUSER [None]
  - DRUG WITHDRAWAL SYNDROME [None]
  - NICOTINE DEPENDENCE [None]
  - VISION BLURRED [None]
  - VISUAL DISTURBANCE [None]
